FAERS Safety Report 8576293-6 (Version None)
Quarter: 2012Q3

REPORT INFORMATION
  Report Type: 
  Country: None (occurrence: None)
  Receive Date: 20120724
  Receipt Date: 20120713
  Transmission Date: 20120928
  Serious: Yes (Hospitalization)
  Sender: FDA-Public Use
  Company Number: AUR-APL-2012-03042

PATIENT
  Sex: Female

DRUGS (14)
  1. BECONASE [Concomitant]
  2. RAMIPRIL [Concomitant]
  3. PAROXETINE HCL [Suspect]
     Indication: DEPRESSION
     Dosage: 40 MG (20 MG, 2 IN 1 D), ORAL, 20 MG (20 MG, 1 IN 1 D), ORAL
     Route: 048
     Dates: start: 20110101, end: 20111101
  4. PAROXETINE HCL [Suspect]
     Indication: DEPRESSION
     Dosage: 40 MG (20 MG, 2 IN 1 D), ORAL, 20 MG (20 MG, 1 IN 1 D), ORAL
     Route: 048
     Dates: start: 20111101
  5. OMEPRAZOLE [Concomitant]
  6. MIRTAZAPINE [Suspect]
     Indication: PRODUCT USED FOR UNKNOWN INDICATION
     Dosage: 30 MG, DAILY
  7. LORAZEPAM [Suspect]
     Indication: PRODUCT USED FOR UNKNOWN INDICATION
     Dosage: 3 MG (1 MG, 3 IN 1 D)
  8. ACRIVASTINE (ACRIVASTINE) [Concomitant]
  9. ATORVASTATIN [Concomitant]
  10. FENOFIBRATE [Concomitant]
  11. PROPRANOLOL [Suspect]
     Indication: PRODUCT USED FOR UNKNOWN INDICATION
     Dosage: 60 MG (10 MG, 6 IN 1 D)
  12. BENDROFLUMETHIAZIDE (BENDROFLUMETHIAZIDE) [Concomitant]
  13. METOCLOPRAMIDE [Suspect]
     Indication: PRODUCT USED FOR UNKNOWN INDICATION
  14. TETRABENAZINE (TETRABENAZINE) [Suspect]
     Indication: PRODUCT USED FOR UNKNOWN INDICATION
     Dosage: 4.5 MG DAILY

REACTIONS (9)
  - FALL [None]
  - AKATHISIA [None]
  - HYPOPHAGIA [None]
  - JOINT CONTRACTURE [None]
  - HALLUCINATION [None]
  - DYSKINESIA [None]
  - GENERAL PHYSICAL HEALTH DETERIORATION [None]
  - ADVERSE DRUG REACTION [None]
  - DRUG EFFECT DECREASED [None]
